FAERS Safety Report 18591232 (Version 2)
Quarter: 2021Q1

REPORT INFORMATION
  Report Type: Spontaneous
  Country: CA (occurrence: CA)
  Receive Date: 20201208
  Receipt Date: 20210106
  Transmission Date: 20210419
  Serious: Yes (Other)
  Sender: FDA-Public Use
  Company Number: CA-SAMSUNG BIOEPIS-SB-2020-20121

PATIENT
  Age: 44 Year
  Sex: Female
  Weight: 75 kg

DRUGS (3)
  1. INFLIXIMAB [Suspect]
     Active Substance: INFLIXIMAB
     Route: 042
  2. INFLIXIMAB [Suspect]
     Active Substance: INFLIXIMAB
     Indication: PSORIATIC ARTHROPATHY
     Route: 042
  3. INFLIXIMAB [Suspect]
     Active Substance: INFLIXIMAB
     Indication: PSORIASIS
     Dosage: UNKNOWN
     Route: 042

REACTIONS (8)
  - Off label use [Unknown]
  - SARS-CoV-2 test positive [Unknown]
  - Condition aggravated [Unknown]
  - Coronavirus test positive [Unknown]
  - Tooth infection [Unknown]
  - Heart rate irregular [Unknown]
  - Therapeutic product effect incomplete [Unknown]
  - Prescribed underdose [Unknown]
